FAERS Safety Report 9520086 (Version 1)
Quarter: 2013Q3

REPORT INFORMATION
  Report Type: Spontaneous
  Country: NL (occurrence: NL)
  Receive Date: 20130912
  Receipt Date: 20130912
  Transmission Date: 20140515
  Serious: Yes (Death, Hospitalization)
  Sender: FDA-Public Use
  Company Number: PHHY2013NL100889

PATIENT
  Age: 71 Year
  Sex: Female
  Weight: 10 kg

DRUGS (2)
  1. CO-DIOVAN [Suspect]
     Indication: HYPERTENSION
     Dosage: 1 DF (320 MG VALS AND 12.5 MG HCTZ), QD
     Dates: start: 2012
  2. MOVIPREP                           /06224801/ [Concomitant]
     Dosage: MOVIPREP POWDER FOR DRINK IN SACHET A+B (ONCE ONLY)
     Dates: start: 20130414

REACTIONS (1)
  - Hypokalaemia [Fatal]
